FAERS Safety Report 10239021 (Version 1)
Quarter: 2014Q2

REPORT INFORMATION
  Report Type: Report from Study
  Country: US (occurrence: US)
  Receive Date: 20140616
  Receipt Date: 20140616
  Transmission Date: 20141212
  Serious: Yes (Other)
  Sender: FDA-Public Use
  Company Number: US-ACTELION-A-NJ2014-100040

PATIENT
  Age: 49 Year
  Sex: Female

DRUGS (3)
  1. MACITENTAN [Suspect]
     Indication: HEART DISEASE CONGENITAL
     Dosage: 10 MG, QD
     Route: 048
     Dates: start: 20140120
  2. TYVASO [Suspect]
  3. ADCIRCA [Concomitant]

REACTIONS (1)
  - Epistaxis [Unknown]
